FAERS Safety Report 8141853 (Version 5)
Quarter: 2013Q3

REPORT INFORMATION
  Report Type: Report from Study
  Country: US (occurrence: US)
  Receive Date: 20110919
  Receipt Date: 20130723
  Transmission Date: 20140515
  Serious: Yes (Hospitalization, Other)
  Sender: FDA-Public Use
  Company Number: US-ELI_LILLY_AND_COMPANY-US201102003023

PATIENT
  Sex: Female

DRUGS (17)
  1. TERIPARATIDE [Suspect]
     Indication: OSTEOPOROSIS
     Dosage: 20 UG, QD
     Route: 058
     Dates: start: 20110201
  2. TERIPARATIDE [Suspect]
     Dosage: 20 UG, QD
     Route: 058
  3. TERIPARATIDE [Suspect]
     Dosage: 20 UG, QD
     Route: 058
  4. TERIPARATIDE [Suspect]
     Dosage: 20 UG, QD
     Route: 058
  5. TERIPARATIDE [Suspect]
     Dosage: 20 UG, QD
     Route: 058
  6. TERIPARATIDE [Suspect]
     Dosage: 20 UG, QD
     Route: 058
     Dates: end: 201212
  7. OXYGEN [Concomitant]
     Dates: start: 2009
  8. MORPHINE                           /00036301/ [Concomitant]
     Dates: start: 20110207
  9. FUROSEMIDE [Concomitant]
     Dosage: 20 MG, QD
  10. PROTONIX [Concomitant]
     Dosage: 40 MG, QD
  11. ZOLOFT [Concomitant]
     Dosage: 100 MG, QD
  12. COREG [Concomitant]
     Indication: BLOOD PRESSURE
  13. KLOR-CON M20 [Concomitant]
  14. VITAMIN D [Concomitant]
  15. AMITRIPTYLINE [Concomitant]
     Dosage: 25 MG, QD
  16. TYLENOL                                 /SCH/ [Concomitant]
     Dosage: 500 MG, OTHER
  17. MULTIVITAMIN [Concomitant]

REACTIONS (20)
  - Cerebrovascular accident [Unknown]
  - Myocardial infarction [Unknown]
  - Blood pressure decreased [Unknown]
  - Syncope [Unknown]
  - Pain [Unknown]
  - Intervertebral disc compression [Unknown]
  - Chronic obstructive pulmonary disease [Unknown]
  - Migraine [Unknown]
  - Malaise [Unknown]
  - Back pain [Not Recovered/Not Resolved]
  - Abdominal pain [Not Recovered/Not Resolved]
  - Muscle strain [Unknown]
  - Movement disorder [Unknown]
  - Vomiting [Unknown]
  - Upper extremity mass [Unknown]
  - Paraesthesia [Not Recovered/Not Resolved]
  - Malaise [Unknown]
  - Polymyalgia rheumatica [Not Recovered/Not Resolved]
  - Oral candidiasis [Unknown]
  - Aphonia [Unknown]
